FAERS Safety Report 24630621 (Version 2)
Quarter: 2024Q4

REPORT INFORMATION
  Report Type: Spontaneous
  Country: US (occurrence: US)
  Receive Date: 20241118
  Receipt Date: 20241119
  Transmission Date: 20250114
  Serious: No
  Sender: Haleon PLC
  Company Number: US-HALEON-2209110

PATIENT
  Age: 66 Year
  Sex: Male

DRUGS (1)
  1. SENSODYNE ADVANCED WHITENING [Suspect]
     Active Substance: POTASSIUM NITRATE\SODIUM FLUORIDE
     Indication: Tooth whitening
     Dosage: 2 - APPLICATION (AP)
     Dates: start: 20241024

REACTIONS (3)
  - Coating in mouth [Unknown]
  - Product complaint [Unknown]
  - Drug ineffective [Unknown]

NARRATIVE: CASE EVENT DATE: 20241024
